FAERS Safety Report 15164613 (Version 2)
Quarter: 2018Q3

REPORT INFORMATION
  Report Type: Spontaneous
  Country: US (occurrence: US)
  Receive Date: 20180719
  Receipt Date: 20180727
  Transmission Date: 20181010
  Serious: No
  Sender: FDA-Public Use
  Company Number: US-TEVA-2018-US-928815

PATIENT
  Sex: Female

DRUGS (1)
  1. LORAZEPAM. [Suspect]
     Active Substance: LORAZEPAM
     Route: 065

REACTIONS (7)
  - Fatigue [Unknown]
  - Pollakiuria [Unknown]
  - Malaise [Unknown]
  - Myalgia [Unknown]
  - Thirst [Unknown]
  - Dry mouth [Unknown]
  - Drug effect decreased [Unknown]
